FAERS Safety Report 12001547 (Version 3)
Quarter: 2016Q1

REPORT INFORMATION
  Report Type: Spontaneous
  Country: FR (occurrence: FR)
  Receive Date: 20160204
  Receipt Date: 20160301
  Transmission Date: 20160526
  Serious: Yes (Life-Threatening, Hospitalization, Other)
  Sender: FDA-Public Use
  Company Number: FR-PFIZER INC-2016058610

PATIENT
  Age: 45 Year
  Sex: Female

DRUGS (7)
  1. XEROQUEL [Suspect]
     Active Substance: QUETIAPINE FUMARATE
     Dosage: 500 MG (10 DF), SINGLE
     Route: 048
     Dates: start: 20151227, end: 20151227
  2. NOCTAMIDE [Suspect]
     Active Substance: LORMETAZEPAM
     Dosage: 70 MG (35 DF), SINGLE
     Dates: start: 20151227, end: 20151227
  3. LEVOTHYROX [Concomitant]
     Active Substance: LEVOTHYROXINE
     Dosage: 75 UG, DAILY
  4. XANAX [Suspect]
     Active Substance: ALPRAZOLAM
     Dosage: 20 MG (40 DF), SINGLE
     Route: 048
     Dates: start: 20151227, end: 20151227
  5. XANAX [Suspect]
     Active Substance: ALPRAZOLAM
     Dosage: UNK
     Route: 048
  6. TARDYFERON [Concomitant]
     Active Substance: FERROUS SULFATE\FOLIC ACID
     Dosage: 1 DF, DAILY
  7. XEROQUEL [Suspect]
     Active Substance: QUETIAPINE FUMARATE
     Dosage: UNK
     Route: 048

REACTIONS (4)
  - Intentional overdose [Recovered/Resolved]
  - Somnolence [Recovered/Resolved]
  - Hypotonia [Recovered/Resolved]
  - Iron deficiency anaemia [Unknown]

NARRATIVE: CASE EVENT DATE: 20151227
